FAERS Safety Report 6206114-8 (Version None)
Quarter: 2009Q2

REPORT INFORMATION
  Report Type: 
  Country: None (occurrence: None)
  Receive Date: 20090528
  Receipt Date: 20090219
  Transmission Date: 20091009
  Serious: No
  Sender: FDA-Public Use
  Company Number: US-KINGPHARMUSA00001-K200900175

PATIENT
  Age: 50 Year
  Sex: Female

DRUGS (3)
  1. AVINZA [Suspect]
     Indication: COMPLEX REGIONAL PAIN SYNDROME
     Dosage: 120 MG, QD
     Route: 048
  2. AVINZA [Suspect]
     Indication: BACK DISORDER
     Dosage: 90 MG, QD
     Route: 048
     Dates: start: 20070101
  3. PERCOCET [Concomitant]
     Indication: BREAKTHROUGH PAIN
     Dosage: UNK
     Route: 048

REACTIONS (1)
  - ROAD TRAFFIC ACCIDENT [None]
